FAERS Safety Report 20986427 (Version 1)
Quarter: 2022Q2

REPORT INFORMATION
  Report Type: Spontaneous
  Country: US (occurrence: None)
  Receive Date: 20220617
  Receipt Date: 20220617
  Transmission Date: 20220721
  Serious: No
  Sender: FDA-Public Use
  Company Number: None

PATIENT
  Age: 70 Year
  Sex: Male
  Weight: 83.25 kg

DRUGS (1)
  1. CANNABIDIOL\HERBALS\TETRAHYDROCANNABINOL UNSPECIFIED [Suspect]
     Active Substance: CANNABIDIOL\HERBALS\TETRAHYDROCANNABINOL UNSPECIFIED
     Indication: Smoking cessation therapy
     Dates: start: 20220601, end: 20220601

REACTIONS (3)
  - Nausea [None]
  - Product use in unapproved indication [None]
  - Incorrect route of product administration [None]

NARRATIVE: CASE EVENT DATE: 20220601
